FAERS Safety Report 7269577-5 (Version None)
Quarter: 2011Q1

REPORT INFORMATION
  Report Type: 
  Country: None (occurrence: None)
  Receive Date: 20110202
  Receipt Date: 20110124
  Transmission Date: 20110831
  Serious: Yes (Life-Threatening, Hospitalization)
  Sender: FDA-Public Use
  Company Number: ES-PFIZER INC-ES-WYE-G01871008

PATIENT
  Age: 42 Year
  Sex: Female

DRUGS (9)
  1. VOLTAREN [Interacting]
     Dosage: 100 MG/DAY
     Route: 048
     Dates: start: 20080101
  2. RELPAX [Interacting]
     Indication: MIGRAINE
     Dosage: 40 MG, 1X/DAY
     Route: 048
     Dates: start: 20080606, end: 20080607
  3. ALAPRYL [Interacting]
     Dosage: 40 MG, 1X/DAY
     Route: 048
     Dates: start: 20080101
  4. PANTOPRAZOLE [Concomitant]
  5. VENLAFAXINE HCL [Suspect]
     Dosage: 225 MG PER DAY (75 MG AT BREAKFAST + 150 MG AT DINNER)
     Route: 048
     Dates: start: 20080101, end: 20080607
  6. STRATTERA [Interacting]
     Dosage: 100 MG/DAY (40 MG AT BREAKFAST + 60 MG AT DINNER)
     Route: 048
     Dates: start: 20080606, end: 20080607
  7. DUPHALAC [Concomitant]
  8. PRIMPERAN TAB [Interacting]
     Dosage: 5 MG, 125 ML SOLUTION
     Route: 048
     Dates: start: 20080101
  9. PARACETAMOL [Concomitant]
     Route: 065

REACTIONS (2)
  - ACUTE CORONARY SYNDROME [None]
  - DRUG INTERACTION [None]
